FAERS Safety Report 4865831-2 (Version None)
Quarter: 2005Q4

REPORT INFORMATION
  Report Type: 
  Country: None (occurrence: None)
  Receive Date: 20051220
  Receipt Date: 20051209
  Transmission Date: 20060501
  Serious: Yes (Hospitalization, Other)
  Sender: FDA-Public Use
  Company Number: 2005142536

PATIENT

DRUGS (7)
  1. ALPRAZOLAM [Suspect]
     Indication: ILL-DEFINED DISORDER
     Dosage: PLACENTAL
     Dates: end: 20050101
  2. THIOPENTAL SODIUM [Suspect]
     Indication: ILL-DEFINED DISORDER
     Dates: start: 20041001, end: 20051001
  3. MIDAZOLAM HCL [Suspect]
     Indication: ILL-DEFINED DISORDER
     Dates: start: 20051001, end: 20051001
  4. DEPAS (ETIZOLAM) [Concomitant]
  5. PAXIL [Concomitant]
  6. NITRAZEPAM [Concomitant]
  7. BROMAZEPAM [Concomitant]

REACTIONS (5)
  - CAESAREAN SECTION [None]
  - DRUG EXPOSURE DURING PREGNANCY [None]
  - NEONATAL ASPHYXIA [None]
  - NEONATAL RESPIRATORY DEPRESSION [None]
  - PREGNANCY [None]
